FAERS Safety Report 17699162 (Version 1)
Quarter: 2020Q2

REPORT INFORMATION
  Report Type: Spontaneous
  Country: US (occurrence: US)
  Receive Date: 20200422
  Receipt Date: 20200422
  Transmission Date: 20200714
  Serious: No
  Sender: FDA-Public Use
  Company Number: None

PATIENT
  Age: 45 Year
  Sex: Female

DRUGS (2)
  1. LORBRENA [Suspect]
     Active Substance: LORLATINIB
     Indication: METASTASES TO LYMPH NODES
     Route: 048
     Dates: start: 20200228
  2. LORBRENA [Suspect]
     Active Substance: LORLATINIB
     Indication: LUNG CARCINOMA CELL TYPE UNSPECIFIED STAGE 0
     Route: 048
     Dates: start: 20200228

REACTIONS (4)
  - Confusional state [None]
  - Weight increased [None]
  - Generalised oedema [None]
  - Speech disorder [None]

NARRATIVE: CASE EVENT DATE: 20200325
